FAERS Safety Report 5649331-8 (Version None)
Quarter: 2008Q1

REPORT INFORMATION
  Report Type: 
  Country: None (occurrence: None)
  Receive Date: 20080304
  Receipt Date: 20080109
  Transmission Date: 20080703
  Serious: No
  Sender: FDA-Public Use
  Company Number: US-BAYER-200810879NA

PATIENT
  Sex: Female
  Weight: 66 kg

DRUGS (2)
  1. ULTRAVIST 150 [Suspect]
     Indication: COMPUTERISED TOMOGRAM
     Route: 042
  2. CONTRAST MEDIA [Concomitant]
     Route: 048

REACTIONS (1)
  - PRURITUS [None]
